FAERS Safety Report 5495412-1 (Version None)
Quarter: 2007Q4

REPORT INFORMATION
  Report Type: 
  Country: None (occurrence: None)
  Receive Date: 20071023
  Receipt Date: 20071010
  Transmission Date: 20080405
  Serious: Yes (Other)
  Sender: FDA-Public Use
  Company Number: 237296K07USA

PATIENT
  Age: 51 Year
  Sex: Female
  Weight: 58.9676 kg

DRUGS (2)
  1. REBIF [Suspect]
     Indication: MULTIPLE SCLEROSIS
     Dosage: 44 MCG, 3 IN 1 WEEKS, SUBCUTANEOUS, 44 MCG, ONCE, SUBCUTANEOUS
     Route: 058
     Dates: start: 20040101, end: 20060201
  2. REBIF [Suspect]
     Indication: MULTIPLE SCLEROSIS
     Dosage: 44 MCG, 3 IN 1 WEEKS, SUBCUTANEOUS, 44 MCG, ONCE, SUBCUTANEOUS
     Route: 058
     Dates: start: 20060301, end: 20060301

REACTIONS (4)
  - BREAST CANCER FEMALE [None]
  - LYMPHADENOPATHY [None]
  - PAIN [None]
  - PRURITUS GENERALISED [None]
